FAERS Safety Report 17801468 (Version 1)
Quarter: 2020Q2

REPORT INFORMATION
  Report Type: Spontaneous
  Country: SE (occurrence: SE)
  Receive Date: 20200519
  Receipt Date: 20200519
  Transmission Date: 20200714
  Serious: Yes (Other)
  Sender: FDA-Public Use
  Company Number: SE-DENTSPLY-2020SCDP000174

PATIENT
  Sex: Male

DRUGS (2)
  1. XYLOCAINE [Suspect]
     Active Substance: LIDOCAINE HYDROCHLORIDE
     Indication: ANAESTHESIA
     Dosage: GEL
     Route: 061
  2. XYLOCAINE [Suspect]
     Active Substance: LIDOCAINE HYDROCHLORIDE
     Indication: ANALGESIC THERAPY
     Dosage: SOLUTION FOR INJECTION
     Route: 065

REACTIONS (8)
  - Pallor [None]
  - Blood pressure decreased [Unknown]
  - Discomfort [None]
  - Pain [None]
  - Drug intolerance [Unknown]
  - Penile burning sensation [None]
  - Heart rate decreased [Unknown]
  - Anxiety [None]
